APPROVED DRUG PRODUCT: EMBEDA
Active Ingredient: MORPHINE SULFATE; NALTREXONE HYDROCHLORIDE
Strength: 30MG;1.2MG **Federal Register determination that product was not discontinued or withdrawn for safety or effectiveness reasons**
Dosage Form/Route: CAPSULE, EXTENDED RELEASE;ORAL
Application: N022321 | Product #002
Applicant: ALPHARMA PHARMACEUTICALS LLC
Approved: Aug 13, 2009 | RLD: Yes | RS: No | Type: DISCN

PATENTS:
Patent 7682633 | Expires: Jun 19, 2027
Patent 8623418 | Expires: Nov 7, 2029
Patent 8158156 | Expires: Jun 19, 2027
Patent 8846104 | Expires: Jun 19, 2027
Patent 7682634 | Expires: Jun 19, 2027
Patent 7815934 | Expires: Dec 12, 2027
Patent 8877247 | Expires: Jun 19, 2027